FAERS Safety Report 9994983 (Version 3)
Quarter: 2014Q2

REPORT INFORMATION
  Report Type: Spontaneous
  Country: CZ (occurrence: None)
  Receive Date: 20140306
  Receipt Date: 20140402
  Transmission Date: 20141212
  Serious: Yes (Hospitalization)
  Sender: FDA-Public Use
  Company Number: 2014MPI00137

PATIENT
  Age: 65 Year
  Sex: Female
  Weight: 55.3 kg

DRUGS (4)
  1. BRENTUXIMAB VEDOTIN [Suspect]
     Indication: HODGKIN^S DISEASE
     Route: 042
     Dates: start: 20131121
  2. DOXORUBICIN (DOXORUBICIN) INJECTION [Suspect]
     Indication: HODGKIN^S DISEASE
     Route: 042
     Dates: start: 20131121, end: 20140206
  3. VINBLASTINE (VINBLASTINE SULFATE) INJECTION [Suspect]
     Indication: HODGKIN^S DISEASE
     Route: 042
     Dates: start: 20131121, end: 20140313
  4. DACARBAZINE (DACARBAZINE) INJECTION [Suspect]
     Indication: HODGKIN^S DISEASE
     Route: 042
     Dates: start: 20131121, end: 20140313

REACTIONS (12)
  - Malnutrition [None]
  - Febrile neutropenia [None]
  - Hypersensitivity [None]
  - Vomiting [None]
  - Nausea [None]
  - Weight decreased [None]
  - Dehydration [None]
  - Electrolyte imbalance [None]
  - Anaemia [None]
  - Thrombophlebitis [None]
  - Diarrhoea [None]
  - Dyspnoea [None]
